FAERS Safety Report 8521377-1 (Version None)
Quarter: 2012Q3

REPORT INFORMATION
  Report Type: 
  Country: None (occurrence: None)
  Receive Date: 20120719
  Receipt Date: 20110603
  Transmission Date: 20120928
  Serious: No
  Sender: FDA-Public Use
  Company Number: US-BRISTOL-MYERS SQUIBB COMPANY-15139397

PATIENT
  Age: 70 Year
  Sex: Female

DRUGS (1)
  1. SPRYCEL [Suspect]
     Indication: CHRONIC MYELOID LEUKAEMIA
     Dosage: 50MG 2 PER DAILY.

REACTIONS (9)
  - RASH [None]
  - MADAROSIS [None]
  - SUNBURN [None]
  - DRY SKIN [None]
  - TOOTH DISCOLOURATION [None]
  - SKIN BURNING SENSATION [None]
  - PRURITUS [None]
  - ACNE [None]
  - SKIN DISCOLOURATION [None]
